FAERS Safety Report 11586711 (Version 1)
Quarter: 2015Q4

REPORT INFORMATION
  Report Type: Spontaneous
  Country: US (occurrence: US)
  Receive Date: 20151001
  Receipt Date: 20151001
  Transmission Date: 20160304
  Serious: Yes (Other)
  Sender: FDA-Public Use
  Company Number: US-PFIZER INC-2015317126

PATIENT
  Age: 53 Year
  Sex: Female

DRUGS (4)
  1. GABAPENTIN. [Suspect]
     Active Substance: GABAPENTIN
     Indication: PAIN
     Dosage: 300 MG, DAILY
     Route: 048
  2. GABAPENTIN. [Suspect]
     Active Substance: GABAPENTIN
     Dosage: 100 MG, 4X/DAY
     Route: 048
     Dates: end: 201412
  3. MELOXICAM. [Suspect]
     Active Substance: MELOXICAM
     Indication: FEELING ABNORMAL
     Dosage: 15 MG, 1X/DAY
     Route: 048
     Dates: end: 201412
  4. CYCLOBENZAPRINE [Suspect]
     Active Substance: CYCLOBENZAPRINE
     Dosage: UNK
     Dates: end: 201412

REACTIONS (6)
  - Somnolence [Unknown]
  - Weight increased [Recovering/Resolving]
  - Fatigue [Unknown]
  - Drug intolerance [Unknown]
  - Feeling abnormal [Recovered/Resolved]
  - Gastrooesophageal reflux disease [Unknown]

NARRATIVE: CASE EVENT DATE: 2014
